FAERS Safety Report 7957471-3 (Version None)
Quarter: 2011Q4

REPORT INFORMATION
  Report Type: 
  Country: None (occurrence: None)
  Receive Date: 20111205
  Receipt Date: 20111129
  Transmission Date: 20120403
  Serious: Yes (Hospitalization)
  Sender: FDA-Public Use
  Company Number: US-CELGENEUS-163-21880-11114140

PATIENT
  Sex: Female
  Weight: 68.1 kg

DRUGS (17)
  1. REVLIMID [Suspect]
     Indication: MULTIPLE MYELOMA
     Dosage: 15 MILLIGRAM
     Route: 048
     Dates: start: 20111029
  2. SENNA [Concomitant]
     Route: 065
  3. CITALOPRAM [Concomitant]
     Route: 065
  4. ARANESP [Concomitant]
     Route: 065
  5. PRILOSEC [Concomitant]
     Route: 065
  6. REMERON [Concomitant]
     Route: 065
  7. DEXAMETHASONE [Concomitant]
     Route: 065
  8. COMPAZINE [Concomitant]
     Route: 065
  9. MIRALAX [Concomitant]
     Route: 065
  10. COLACE [Concomitant]
     Route: 065
  11. FLUCONAZOLE [Concomitant]
     Route: 065
  12. ALLOPURINOL [Concomitant]
     Route: 065
  13. ACYCLOVIR [Concomitant]
     Route: 065
  14. ACETAMINOPHEN [Concomitant]
     Route: 065
  15. DILAUDID [Concomitant]
     Route: 065
  16. BACTRIM [Concomitant]
     Route: 065
  17. ATIVAN [Concomitant]
     Route: 065

REACTIONS (5)
  - ASTHENIA [None]
  - LABORATORY TEST ABNORMAL [None]
  - OEDEMA PERIPHERAL [None]
  - NAUSEA [None]
  - CONFUSIONAL STATE [None]
